FAERS Safety Report 13599876 (Version 1)
Quarter: 2017Q2

REPORT INFORMATION
  Report Type: Spontaneous
  Country: US (occurrence: US)
  Receive Date: 20170531
  Receipt Date: 20170531
  Transmission Date: 20170830
  Serious: Yes (Life-Threatening, Other)
  Sender: FDA-Public Use
  Company Number: None

PATIENT
  Age: 35 Year
  Sex: Female
  Weight: 85 kg

DRUGS (1)
  1. GADODIAMIDE [Suspect]
     Active Substance: GADODIAMIDE
     Indication: NUCLEAR MAGNETIC RESONANCE IMAGING
     Dates: start: 20170508, end: 20170508

REACTIONS (3)
  - Respiratory distress [None]
  - Anaphylactic reaction [None]
  - Cardio-respiratory arrest [None]

NARRATIVE: CASE EVENT DATE: 20170508
